FAERS Safety Report 24844192 (Version 2)
Quarter: 2025Q3

REPORT INFORMATION
  Report Type: Report from Study
  Country: CA (occurrence: CA)
  Receive Date: 20250115
  Receipt Date: 20250717
  Transmission Date: 20251021
  Serious: Yes (Hospitalization)
  Sender: BOEHRINGER INGELHEIM
  Company Number: CA-BoehringerIngelheim-2024-BI-001630

PATIENT
  Age: 74 Year
  Sex: Male

DRUGS (3)
  1. OFEV [Suspect]
     Active Substance: NINTEDANIB
     Indication: Interstitial lung disease
     Dates: start: 20240105
  2. OFEV [Suspect]
     Active Substance: NINTEDANIB
     Dosage: 150MG AT BEDTIME AND 100MG MORNING
     Dates: start: 202405
  3. OFEV [Suspect]
     Active Substance: NINTEDANIB
     Dates: start: 20231223

REACTIONS (15)
  - Pleural effusion [Recovering/Resolving]
  - Peripheral swelling [Recovering/Resolving]
  - Dyspnoea [Recovering/Resolving]
  - Nausea [Not Recovered/Not Resolved]
  - Presyncope [Recovered/Resolved]
  - Diarrhoea [Recovered/Resolved with Sequelae]
  - Abdominal pain upper [Recovering/Resolving]
  - Gastrointestinal disorder [Not Recovered/Not Resolved]
  - Abdominal pain [Recovered/Resolved]
  - Abdominal distension [Not Recovered/Not Resolved]
  - Weight decreased [Recovered/Resolved with Sequelae]
  - Diarrhoea [Not Recovered/Not Resolved]
  - Decreased appetite [Not Recovered/Not Resolved]
  - Insomnia [Unknown]
  - Malaise [Recovering/Resolving]
